FAERS Safety Report 9044911 (Version 1)
Quarter: 2013Q1

REPORT INFORMATION
  Report Type: Report from Study
  Country: JP (occurrence: JP)
  Receive Date: 20130130
  Receipt Date: 20130130
  Transmission Date: 20140127
  Serious: Yes (Other)
  Sender: FDA-Public Use
  Company Number: JP-GLAXOSMITHKLINE-B0860661A

PATIENT
  Age: 8 None
  Sex: Male
  Weight: 31 kg

DRUGS (47)
  1. ARRANON [Suspect]
     Indication: T-CELL TYPE ACUTE LEUKAEMIA
     Dosage: 650MGM2 PER DAY
     Route: 042
     Dates: start: 20090521, end: 20090525
  2. ARRANON [Suspect]
     Indication: T-CELL TYPE ACUTE LEUKAEMIA
     Dosage: 650MGM2 PER DAY
     Route: 042
     Dates: start: 20090611, end: 20090615
  3. ARRANON [Suspect]
     Indication: T-CELL TYPE ACUTE LEUKAEMIA
     Dosage: 650MGM2 PER DAY
     Route: 042
     Dates: start: 20090702, end: 20090706
  4. ARRANON [Suspect]
     Indication: T-CELL TYPE ACUTE LEUKAEMIA
     Dosage: 650MGM2 PER DAY
     Route: 042
     Dates: start: 20090723, end: 20090727
  5. METHOTREXATE [Concomitant]
     Indication: NEOPLASM MALIGNANT
     Dates: start: 20090408, end: 20090429
  6. VINCRISTINE SULFATE [Concomitant]
     Indication: NEOPLASM MALIGNANT
     Route: 042
     Dates: start: 20090415, end: 20090429
  7. THERARUBICIN [Concomitant]
     Indication: NEOPLASM MALIGNANT
     Dates: start: 20090415, end: 20090416
  8. CYCLOPHOSPHAMIDE [Concomitant]
     Indication: NEOPLASM MALIGNANT
     Route: 042
     Dates: start: 20090416, end: 20090416
  9. LEUNASE [Concomitant]
     Indication: NEOPLASM MALIGNANT
     Route: 042
     Dates: start: 20090412, end: 20090503
  10. MUCODYNE [Concomitant]
     Route: 048
  11. MAGNESIUM OXIDE [Concomitant]
     Route: 048
  12. DEPAS [Concomitant]
     Route: 048
  13. MUCODYNE [Concomitant]
     Route: 048
  14. BAKTAR [Concomitant]
     Route: 048
  15. ENTERONON-R [Concomitant]
     Route: 048
  16. FUNGIZONE [Concomitant]
     Route: 048
  17. LOXONIN [Concomitant]
     Route: 048
  18. GLYCERIN [Concomitant]
     Route: 054
  19. LAXOBERON [Concomitant]
     Route: 048
  20. MAGMITT [Concomitant]
     Route: 048
  21. HIRUDOID [Concomitant]
     Route: 061
  22. DECADRON [Concomitant]
     Route: 048
  23. POTASSIUM GLUCONATE [Concomitant]
     Route: 048
  24. DIFLUCAN [Concomitant]
     Route: 048
  25. FUROSEMIDE [Concomitant]
     Route: 048
  26. TAKEPRON [Concomitant]
     Route: 048
  27. TIMOPTOL [Concomitant]
     Route: 031
  28. MEPTIN [Concomitant]
     Route: 048
  29. ASVERIN (TIPEPIDINE HIBENZATE) [Concomitant]
     Route: 048
  30. ZYLORIC [Concomitant]
     Route: 048
  31. PREDONINE [Concomitant]
  32. ATROPINE SULFATE [Concomitant]
  33. NOVO HEPARIN [Concomitant]
  34. KETALAR [Concomitant]
     Route: 042
  35. KYTRIL [Concomitant]
     Route: 042
  36. PRODIF [Concomitant]
     Route: 042
  37. FUROSEMIDE [Concomitant]
     Route: 042
  38. VECURONIUM BROMIDE [Concomitant]
     Route: 042
  39. DORMICUM [Concomitant]
  40. BOSMIN [Concomitant]
     Route: 042
  41. FIRSTCIN [Concomitant]
     Route: 042
  42. OMEPRAL [Concomitant]
     Route: 042
  43. INOVAN [Concomitant]
     Route: 042
  44. VICCILLIN [Concomitant]
     Route: 042
  45. ATARAX [Concomitant]
  46. VITAMINS [Concomitant]
     Route: 042
  47. CALCICOL [Concomitant]
     Route: 042

REACTIONS (2)
  - Pancytopenia [Not Recovered/Not Resolved]
  - Tremor [Recovered/Resolved]
